FAERS Safety Report 10607564 (Version 1)
Quarter: 2014Q4

REPORT INFORMATION
  Report Type: Spontaneous
  Country: FR (occurrence: FR)
  Receive Date: 20141125
  Receipt Date: 20141125
  Transmission Date: 20150529
  Serious: Yes (Life-Threatening, Hospitalization)
  Sender: FDA-Public Use
  Company Number: FR-BRISTOL-MYERS SQUIBB COMPANY-21604483

PATIENT
  Age: 49 Year
  Sex: Male
  Weight: 83 kg

DRUGS (1)
  1. YERVOY [Suspect]
     Active Substance: IPILIMUMAB
     Indication: METASTATIC MALIGNANT MELANOMA
     Dosage: 249MG, SECOND INFUSION 01SEP2014
     Route: 042
     Dates: start: 20140811, end: 20140901

REACTIONS (5)
  - Uveitis [Recovering/Resolving]
  - Colitis [Recovering/Resolving]
  - Mixed liver injury [Recovered/Resolved]
  - Nephropathy [Not Recovered/Not Resolved]
  - Autoimmune disorder [Recovering/Resolving]

NARRATIVE: CASE EVENT DATE: 20140910
